FAERS Safety Report 21514779 (Version 1)
Quarter: 2022Q4

REPORT INFORMATION
  Report Type: Spontaneous
  Country: FR (occurrence: FR)
  Receive Date: 20221027
  Receipt Date: 20221027
  Transmission Date: 20230112
  Serious: Yes (Other)
  Sender: FDA-Public Use
  Company Number: None

PATIENT
  Age: 91 Year
  Sex: Male

DRUGS (1)
  1. PANTOPRAZOLE [Suspect]
     Active Substance: PANTOPRAZOLE
     Indication: Gastrointestinal haemorrhage
     Dosage: 8 MILLIGRAM, Q1HR
     Route: 042
     Dates: start: 20221009, end: 20221010

REACTIONS (3)
  - Oedema peripheral [Recovered/Resolved with Sequelae]
  - Infusion site haematoma [Recovered/Resolved with Sequelae]
  - Administration site extravasation [Recovered/Resolved with Sequelae]

NARRATIVE: CASE EVENT DATE: 20221009
